FAERS Safety Report 8336464-0 (Version None)
Quarter: 2012Q2

REPORT INFORMATION
  Report Type: 
  Country: None (occurrence: None)
  Receive Date: 20120501
  Receipt Date: 20120416
  Transmission Date: 20120825
  Serious: Yes (Hospitalization)
  Sender: FDA-Public Use
  Company Number: DSA_56323_2012

PATIENT
  Sex: Male

DRUGS (11)
  1. PANTOPRAZOLE [Suspect]
     Indication: GASTRODUODENAL ULCER
     Dosage: (DF ORAL)
     Route: 048
     Dates: start: 20120307
  2. PANTOPRAZOLE [Suspect]
     Indication: HELICOBACTER TEST POSITIVE
     Dosage: (DF ORAL)
     Route: 048
     Dates: start: 20120307
  3. CLARITHROMYCIN [Suspect]
     Indication: HELICOBACTER TEST POSITIVE
     Dosage: (DF ORAL)
     Route: 048
     Dates: start: 20120307
  4. CLARITHROMYCIN [Suspect]
     Indication: GASTRODUODENAL ULCER
     Dosage: (DF ORAL)
     Route: 048
     Dates: start: 20120307
  5. APROVEL [Concomitant]
  6. POLYETHYLENE GLYCOL [Concomitant]
  7. AMOXICILLIN [Suspect]
     Indication: GASTRODUODENAL ULCER
     Dosage: (DF ORAL)
     Route: 048
     Dates: start: 20120307
  8. AMOXICILLIN [Suspect]
     Indication: HELICOBACTER TEST POSITIVE
     Dosage: (DF ORAL)
     Route: 048
     Dates: start: 20120307
  9. AMLODIPINE BESYLATE [Concomitant]
  10. FLAGYL [Suspect]
     Indication: GASTRODUODENAL ULCER
     Dosage: (400 MG, FREQUENCY UNKNOWN ORAL)
     Route: 048
     Dates: start: 20120307, end: 20120309
  11. FLAGYL [Suspect]
     Indication: HELICOBACTER TEST POSITIVE
     Dosage: (400 MG, FREQUENCY UNKNOWN ORAL)
     Route: 048
     Dates: start: 20120307, end: 20120309

REACTIONS (2)
  - GENERAL PHYSICAL HEALTH DETERIORATION [None]
  - ORGANISING PNEUMONIA [None]
